FAERS Safety Report 13086304 (Version 1)
Quarter: 2017Q1

REPORT INFORMATION
  Report Type: Spontaneous
  Country: JP (occurrence: JP)
  Receive Date: 20170104
  Receipt Date: 20170104
  Transmission Date: 20170428
  Serious: Yes (Other)
  Sender: FDA-Public Use
  Company Number: JP-APOPHARMA USA, INC.-2017AP005106

PATIENT
  Age: 66 Year
  Sex: Female

DRUGS (6)
  1. PREDNISOLONE. [Concomitant]
     Active Substance: PREDNISOLONE
     Indication: PLASMA CELL MYELOMA
     Dosage: 60 MG/M2, QD
     Route: 065
     Dates: start: 201502
  2. PREDNISOLONE. [Concomitant]
     Active Substance: PREDNISOLONE
     Dosage: 36 MG/M2, QD
     Route: 065
     Dates: start: 201505
  3. ALKERAN [Suspect]
     Active Substance: MELPHALAN
     Dosage: 4.8 MG/M2, QD
     Route: 065
     Dates: start: 201508
  4. ALKERAN [Suspect]
     Active Substance: MELPHALAN
     Indication: PLASMA CELL MYELOMA
     Dosage: 8 MG/M2, QD
     Route: 065
     Dates: start: 201502
  5. ALKERAN [Suspect]
     Active Substance: MELPHALAN
     Dosage: 4.8 MG/M2, QD
     Route: 065
     Dates: start: 201505
  6. ALKERAN [Suspect]
     Active Substance: MELPHALAN
     Indication: STEM CELL TRANSPLANT
     Dosage: 200 MG/M2, SINGLE
     Route: 065
     Dates: start: 201112, end: 201112

REACTIONS (3)
  - Bone marrow failure [Unknown]
  - Pancytopenia [Unknown]
  - Plasma cell myeloma recurrent [Recovering/Resolving]

NARRATIVE: CASE EVENT DATE: 201501
